FAERS Safety Report 7434174-5 (Version None)
Quarter: 2011Q2

REPORT INFORMATION
  Report Type: 
  Country: None (occurrence: None)
  Receive Date: 20110425
  Receipt Date: 20110418
  Transmission Date: 20111010
  Serious: Yes (Other)
  Sender: FDA-Public Use
  Company Number: US-PFIZER INC-2011084932

PATIENT
  Sex: Female

DRUGS (1)
  1. EFFEXOR [Suspect]

REACTIONS (1)
  - PHYSICAL ASSAULT [None]
